FAERS Safety Report 10430179 (Version 2)
Quarter: 2014Q4

REPORT INFORMATION
  Report Type: Spontaneous
  Country: DE (occurrence: DE)
  Receive Date: 20140904
  Receipt Date: 20141104
  Transmission Date: 20150528
  Serious: Yes (Other)
  Sender: FDA-Public Use
  Company Number: DE-PFIZER INC-2014240877

PATIENT
  Age: 6 Year
  Sex: Female
  Weight: 21.2 kg

DRUGS (1)
  1. AZULFIDINE [Suspect]
     Active Substance: SULFASALAZINE
     Indication: COLITIS ULCERATIVE
     Dosage: 1250 MG, DAILY
     Route: 048

REACTIONS (4)
  - Wrong technique in drug usage process [Unknown]
  - Colitis ulcerative [Unknown]
  - Incorrect dose administered [Unknown]
  - Large intestinal haemorrhage [Unknown]

NARRATIVE: CASE EVENT DATE: 201406
